FAERS Safety Report 8325251-5 (Version None)
Quarter: 2012Q2

REPORT INFORMATION
  Report Type: 
  Country: None (occurrence: None)
  Receive Date: 20120501
  Receipt Date: 20120423
  Transmission Date: 20120825
  Serious: Yes (Life-Threatening, Hospitalization)
  Sender: FDA-Public Use
  Company Number: FR-ROCHE-1062462

PATIENT
  Sex: Male
  Weight: 72 kg

DRUGS (5)
  1. DEDROGYL [Suspect]
     Indication: PRODUCT USED FOR UNKNOWN INDICATION
     Route: 048
     Dates: start: 20111027, end: 20111208
  2. PEGASYS [Suspect]
     Indication: HEPATITIS C
     Route: 058
     Dates: start: 20111027, end: 20120123
  3. INCIVO [Suspect]
     Indication: HEPATITIS C
     Route: 048
     Dates: start: 20111027, end: 20120123
  4. NEORECORMON [Concomitant]
     Route: 058
  5. COPEGUS [Suspect]
     Indication: HEPATITIS C
     Route: 048
     Dates: start: 20111027, end: 20120123

REACTIONS (16)
  - HEADACHE [None]
  - CONDITION AGGRAVATED [None]
  - STAPHYLOCOCCUS TEST POSITIVE [None]
  - OVERDOSE [None]
  - ASTHMA [None]
  - SUPERINFECTION [None]
  - PSEUDOMONAS TEST POSITIVE [None]
  - HAEMOGLOBIN DECREASED [None]
  - FISTULA [None]
  - PANCREATITIS ACUTE [None]
  - HYPERCALCAEMIA [None]
  - MUSCLE FATIGUE [None]
  - ACUTE RESPIRATORY DISTRESS SYNDROME [None]
  - BILE DUCT STENOSIS [None]
  - PANCREATIC NECROSIS [None]
  - ENTEROCOCCUS TEST POSITIVE [None]
